FAERS Safety Report 11323975 (Version 1)
Quarter: 2015Q3

REPORT INFORMATION
  Report Type: Report from Study
  Country: US (occurrence: US)
  Receive Date: 20150730
  Receipt Date: 20150730
  Transmission Date: 20151125
  Serious: Yes (Death, Hospitalization, Other)
  Sender: FDA-Public Use
  Company Number: US-PFIZER INC-2015250518

PATIENT
  Age: 58 Year
  Sex: Female
  Weight: 49.3 kg

DRUGS (2)
  1. IRINOTECAN HCL [Suspect]
     Active Substance: IRINOTECAN HYDROCHLORIDE
     Indication: COLON CANCER METASTATIC
     Dosage: 270 MG (180 MG/M2), EVERY TWO WEEKS
     Route: 042
     Dates: start: 20150417
  2. CETUXIMAB [Suspect]
     Active Substance: CETUXIMAB
     Indication: ADENOCARCINOMA OF COLON
     Dosage: 750 MG (500 MG/M2), EVERY TWO WEEKS
     Route: 042
     Dates: start: 20150417

REACTIONS (3)
  - Septic shock [Fatal]
  - Hypotension [Unknown]
  - Large intestinal obstruction [Fatal]

NARRATIVE: CASE EVENT DATE: 20150710
